FAERS Safety Report 8028604 (Version 4)
Quarter: 2012Q4

REPORT INFORMATION
  Report Type: 
  Country: US (occurrence: US)
  Receive Date: 20110711
  Receipt Date: 20121002
  Transmission Date: 20130627
  Serious: Yes (Other)
  Sender: FDA-Public Use
  Company Number: US-ROCHE-787955

PATIENT
  Sex: Female
  Weight: 63.56 kg

DRUGS (4)
  1. ACCUTANE [Suspect]
     Indication: ACNE
     Route: 048
     Dates: start: 199511, end: 199604
  2. ACCUTANE [Suspect]
     Route: 048
     Dates: start: 199701, end: 199705
  3. PAMPRIN [Concomitant]
  4. IBUPROFEN [Concomitant]

REACTIONS (7)
  - Inflammatory bowel disease [Unknown]
  - Crohn^s disease [Unknown]
  - Confusional state [Unknown]
  - Feeling of despair [Recovered/Resolved]
  - Injury [Unknown]
  - Dry skin [Unknown]
  - Blood triglycerides increased [Unknown]
